FAERS Safety Report 5486007-4 (Version None)
Quarter: 2007Q4

REPORT INFORMATION
  Report Type: 
  Country: None (occurrence: None)
  Receive Date: 20071012
  Receipt Date: 20071003
  Transmission Date: 20080405
  Serious: No
  Sender: FDA-Public Use
  Company Number: 2007-165221-NL

PATIENT
  Age: 58 Year
  Sex: Female

DRUGS (10)
  1. DEXAMETHASONE 0.5MG TAB [Suspect]
     Indication: POSTOPERATIVE CARE
     Route: 047
     Dates: start: 20070614
  2. CYCLOPENTOLATE HCL [Suspect]
     Indication: PREOPERATIVE CARE
     Dates: start: 20070614
  3. GLYCEROL 2.6% [Suspect]
     Indication: PREOPERATIVE CARE
     Dates: start: 20070614
  4. HYALURONIDASE [Suspect]
     Indication: PERIOPERATIVE ANALGESIA
     Dates: start: 20070614
  5. LIDOCAINE [Suspect]
     Indication: PERIOPERATIVE ANALGESIA
     Dates: start: 20070614
  6. FLURBIPROFEN SODIUM [Suspect]
     Indication: PREOPERATIVE CARE
     Route: 047
     Dates: start: 20070614
  7. OFLOXACIN [Suspect]
     Indication: POSTOPERATIVE CARE
     Dates: start: 20070614
  8. PHENYLEPHRINE [Suspect]
     Indication: PREOPERATIVE CARE
     Dates: start: 20070614
  9. POVIDONE IODINE [Suspect]
     Indication: POSTOPERATIVE CARE
     Dates: start: 20070614
  10. PROXYMETACAINE [Suspect]
     Indication: ANALGESIA
     Dates: start: 20070614

REACTIONS (1)
  - TOXIC ANTERIOR SEGMENT SYNDROME [None]
